FAERS Safety Report 6853751-3 (Version None)
Quarter: 2010Q3

REPORT INFORMATION
  Report Type: 
  Country: None (occurrence: None)
  Receive Date: 20100717
  Receipt Date: 20071217
  Transmission Date: 20110219
  Serious: No
  Sender: FDA-Public Use
  Company Number: US-PFIZER INC-2007107056

PATIENT
  Sex: Male
  Weight: 65.9 kg

DRUGS (2)
  1. CHANTIX [Suspect]
     Indication: SMOKING CESSATION THERAPY
     Route: 048
     Dates: start: 20071101
  2. CARDIOVASCULAR SYSTEM DRUGS [Concomitant]
     Indication: HYPERTENSION

REACTIONS (3)
  - DRUG INTOLERANCE [None]
  - NAUSEA [None]
  - POOR QUALITY SLEEP [None]
